FAERS Safety Report 7652877-4 (Version None)
Quarter: 2011Q3

REPORT INFORMATION
  Report Type: 
  Country: None (occurrence: None)
  Receive Date: 20110728
  Receipt Date: 20110720
  Transmission Date: 20111222
  Serious: Yes (Death)
  Sender: FDA-Public Use
  Company Number: 1000022348

PATIENT
  Age: 58 Year
  Sex: Female

DRUGS (3)
  1. ARICEPT [Concomitant]
  2. MEMANTINE [Suspect]
     Dosage: 20 MG (20 MG, 1 IN 1 D) ORAL, INCREASED DOSE, ORAL
     Route: 048
     Dates: start: 20110701, end: 20110701
  3. MEMANTINE [Suspect]
     Dosage: 20 MG (20 MG, 1 IN 1 D) ORAL, INCREASED DOSE, ORAL
     Route: 048
     Dates: start: 20110620, end: 20110701

REACTIONS (2)
  - CARDIO-RESPIRATORY ARREST [None]
  - DIZZINESS [None]
